FAERS Safety Report 6106275-5 (Version None)
Quarter: 2009Q1

REPORT INFORMATION
  Report Type: 
  Country: None (occurrence: None)
  Receive Date: 20090306
  Receipt Date: 20090225
  Transmission Date: 20090719
  Serious: Yes (Other)
  Sender: FDA-Public Use
  Company Number: PHEH2007US03192

PATIENT
  Sex: Female

DRUGS (1)
  1. ZOMETA [Suspect]

REACTIONS (25)
  - ANXIETY [None]
  - ARTHRALGIA [None]
  - BONE DISORDER [None]
  - BORDERLINE PERSONALITY DISORDER [None]
  - BREAST CANCER [None]
  - DECREASED INTEREST [None]
  - DENTAL NECROSIS [None]
  - DEPRESSION [None]
  - DYSPNOEA [None]
  - ENDODONTIC PROCEDURE [None]
  - EXOSTOSIS [None]
  - GENERAL PHYSICAL HEALTH DETERIORATION [None]
  - GINGIVAL PAIN [None]
  - INFECTION [None]
  - INFLAMMATION OF WOUND [None]
  - LUMBAR SPINAL STENOSIS [None]
  - METASTASES TO LYMPH NODES [None]
  - ORAL PAIN [None]
  - OSTEONECROSIS [None]
  - PAIN [None]
  - PAIN IN JAW [None]
  - PERIODONTITIS [None]
  - SLEEP APNOEA SYNDROME [None]
  - SPINAL OSTEOARTHRITIS [None]
  - TOOTH EXTRACTION [None]
